FAERS Safety Report 18580693 (Version 2)
Quarter: 2020Q4

REPORT INFORMATION
  Report Type: Report from Study
  Country: BR (occurrence: BR)
  Receive Date: 20201204
  Receipt Date: 20201210
  Transmission Date: 20210114
  Serious: Yes (Other)
  Sender: FDA-Public Use
  Company Number: NVSC2020BR318717

PATIENT
  Age: 46 Year
  Sex: Female

DRUGS (2)
  1. ENTRESTO [Suspect]
     Active Substance: SACUBITRIL\VALSARTAN
     Dosage: 200 MG (97/103 MG), UNKNOWN
     Route: 065
     Dates: start: 20201123
  2. ENTRESTO [Suspect]
     Active Substance: SACUBITRIL\VALSARTAN
     Indication: CARDIAC FAILURE
     Dosage: 100 MG (49/51 MG), UNKNOWN
     Route: 065
     Dates: start: 20201112

REACTIONS (13)
  - Neck pain [Unknown]
  - Feeling abnormal [Recovered/Resolved]
  - Nausea [Unknown]
  - Sense of oppression [Recovered/Resolved]
  - Dizziness [Unknown]
  - Pain [Unknown]
  - Dizziness [Recovered/Resolved]
  - Labyrinthitis [Unknown]
  - Head discomfort [Unknown]
  - Visual impairment [Unknown]
  - Blood pressure fluctuation [Recovered/Resolved]
  - Nausea [Recovered/Resolved]
  - Spinal pain [Recovering/Resolving]

NARRATIVE: CASE EVENT DATE: 20201124
